FAERS Safety Report 10098010 (Version 1)
Quarter: 2014Q2

REPORT INFORMATION
  Report Type: Spontaneous
  Country: US (occurrence: US)
  Receive Date: 20140423
  Receipt Date: 20140423
  Transmission Date: 20141212
  Serious: Yes (Other)
  Sender: FDA-Public Use
  Company Number: US-AMGEN INC.-USASP2014028922

PATIENT
  Age: 63 Year
  Sex: Female
  Weight: 158.73 kg

DRUGS (14)
  1. ENBREL [Suspect]
     Indication: PRODUCT USED FOR UNKNOWN INDICATION
     Dosage: 50 MG, QWK
     Route: 058
  2. BACTROBAN                          /00753901/ [Concomitant]
     Dosage: 2 %
  3. FUROSEMIDE [Concomitant]
     Dosage: 20 MG, UNK
  4. METHOTREXATE [Concomitant]
     Dosage: 2.5 MG, UNK
  5. LOVASTATIN [Concomitant]
     Dosage: 20 MG, UNK
  6. LISINOPRIL [Concomitant]
     Dosage: 20 MG, UNK
  7. RANITIDINE [Concomitant]
     Dosage: 300 MG, UNK
  8. TRIAMCINOLON                       /00031901/ [Concomitant]
     Dosage: 0.5 %
  9. METOPROLOL                         /00376902/ [Concomitant]
     Dosage: 25 MG, UNK
  10. CELEXA                             /00582602/ [Concomitant]
     Dosage: 10 MG, UNK
  11. FISH OIL [Concomitant]
     Dosage: UNK
  12. CALCIUM +D                         /00944201/ [Concomitant]
     Dosage: UNK
  13. FOLIC ACID [Concomitant]
     Dosage: UNK
  14. LEVOXYL [Concomitant]
     Dosage: 175 MUG, UNK

REACTIONS (3)
  - Staphylococcal infection [Unknown]
  - Psoriasis [Unknown]
  - Drug ineffective [Unknown]
